FAERS Safety Report 17345717 (Version 3)
Quarter: 2020Q1

REPORT INFORMATION
  Report Type: Spontaneous
  Country: SA (occurrence: SA)
  Receive Date: 20200129
  Receipt Date: 20200324
  Transmission Date: 20200409
  Serious: Yes (Death, Hospitalization, Other)
  Sender: FDA-Public Use
  Company Number: SA-ALEXION PHARMACEUTICALS INC.-A202001133

PATIENT
  Age: 6 Month
  Sex: Male

DRUGS (1)
  1. KANUMA [Suspect]
     Active Substance: SEBELIPASE ALFA
     Indication: LYSOSOMAL ACID LIPASE DEFICIENCY
     Dosage: UNK, QW
     Route: 042

REACTIONS (2)
  - Hepatic failure [Fatal]
  - Infection [Fatal]
